FAERS Safety Report 4286646-2 (Version None)
Quarter: 2004Q1

REPORT INFORMATION
  Report Type: 
  Country: None (occurrence: None)
  Receive Date: 20040204
  Receipt Date: 20040123
  Transmission Date: 20041129
  Serious: Yes (Death)
  Sender: FDA-Public Use
  Company Number: US-JNJFOC-20031003238

PATIENT
  Age: 77 Year
  Sex: Female
  Weight: 69.4003 kg

DRUGS (6)
  1. RISPERDAL [Suspect]
     Indication: DRUG USE FOR UNKNOWN INDICATION
     Dosage: 0.75 MG, 1 IN 1 DAY, ORAL;  0.25 MG, 1 IN 1 AS NECESSARY, ORAL
     Route: 048
  2. ARICEPT [Concomitant]
  3. SYNTHROID [Concomitant]
  4. PAXIL [Concomitant]
  5. PREDNISONE [Concomitant]
  6. MORPHINE SULFATE [Concomitant]

REACTIONS (12)
  - ASTHENIA [None]
  - BLOOD CHLORIDE INCREASED [None]
  - BLOOD SODIUM INCREASED [None]
  - COMA [None]
  - DIABETES MELLITUS [None]
  - HYPOTENSION [None]
  - PCO2 INCREASED [None]
  - PNEUMONIA [None]
  - PO2 DECREASED [None]
  - RENAL FAILURE [None]
  - TROPONIN T INCREASED [None]
  - URINARY TRACT INFECTION [None]
